FAERS Safety Report 7644959-8 (Version None)
Quarter: 2011Q3

REPORT INFORMATION
  Report Type: 
  Country: None (occurrence: None)
  Receive Date: 20110729
  Receipt Date: 20110726
  Transmission Date: 20111222
  Serious: Yes (Other)
  Sender: FDA-Public Use
  Company Number: CA-GLAXOSMITHKLINE-A0938405A

PATIENT
  Age: 72 Year
  Sex: Female

DRUGS (4)
  1. COMBIVENT [Suspect]
     Indication: PRODUCT USED FOR UNKNOWN INDICATION
     Route: 065
  2. PULMICORT [Concomitant]
  3. FLOVENT [Suspect]
     Indication: PRODUCT USED FOR UNKNOWN INDICATION
     Route: 055
     Dates: start: 20110701, end: 20110722
  4. VENTOLIN HFA [Concomitant]

REACTIONS (21)
  - ILL-DEFINED DISORDER [None]
  - PSYCHOMOTOR HYPERACTIVITY [None]
  - ARTHRALGIA [None]
  - NECK PAIN [None]
  - BLOOD PRESSURE INCREASED [None]
  - PANIC ATTACK [None]
  - DISORIENTATION [None]
  - NIGHTMARE [None]
  - CANDIDIASIS [None]
  - ABDOMINAL DISTENSION [None]
  - DYSPHONIA [None]
  - RESTLESS LEGS SYNDROME [None]
  - HEADACHE [None]
  - DISSOCIATION [None]
  - CARDIOMEGALY [None]
  - AGITATION [None]
  - MUSCLE SPASMS [None]
  - SUICIDAL IDEATION [None]
  - BACK PAIN [None]
  - POLLAKIURIA [None]
  - WEIGHT DECREASED [None]
